FAERS Safety Report 5032973-0 (Version None)
Quarter: 2006Q2

REPORT INFORMATION
  Report Type: 
  Country: None (occurrence: None)
  Receive Date: 20060622
  Receipt Date: 20060620
  Transmission Date: 20061013
  Serious: Yes (Other)
  Sender: FDA-Public Use
  Company Number: NL-MERCK-0606NLD00015

PATIENT
  Age: 47 Year
  Sex: Female

DRUGS (4)
  1. ZOCOR [Suspect]
     Indication: HYPERCHOLESTEROLAEMIA
     Route: 048
     Dates: start: 20060511, end: 20060521
  2. ESTRADIOL [Concomitant]
     Route: 048
     Dates: start: 20060505
  3. METFORMIN HYDROCHLORIDE [Concomitant]
     Route: 048
     Dates: start: 20040220
  4. RANITIDINE [Concomitant]
     Route: 048
     Dates: start: 20060111

REACTIONS (2)
  - MUSCULAR WEAKNESS [None]
  - SOMNOLENCE [None]
